FAERS Safety Report 9993541 (Version 2)
Quarter: 2014Q1

REPORT INFORMATION
  Report Type: Report from Study
  Country: AU (occurrence: AU)
  Receive Date: 20140310
  Receipt Date: 20140320
  Transmission Date: 20141002
  Serious: Yes (Other)
  Sender: FDA-Public Use
  Company Number: PHHY2014AU028053

PATIENT
  Age: 60 Year
  Sex: Female

DRUGS (3)
  1. ACLASTA [Suspect]
     Indication: OSTEOPOROSIS
     Dosage: 5 MG, UNK
     Route: 042
     Dates: start: 20130212
  2. VITAMIN D [Concomitant]
     Dosage: UNK UKN, UNK
  3. OSTELIN [Concomitant]
     Indication: VITAMIN D DEFICIENCY
     Dosage: 3000 IU/DAY
     Route: 048
     Dates: start: 20121209

REACTIONS (5)
  - Bronchiectasis [Unknown]
  - Malaise [Recovered/Resolved]
  - Vomiting [Recovered/Resolved]
  - Diarrhoea [Recovered/Resolved]
  - Headache [Recovered/Resolved]
